FAERS Safety Report 11219625 (Version 1)
Quarter: 2015Q2

REPORT INFORMATION
  Report Type: Spontaneous
  Country: DK (occurrence: DK)
  Receive Date: 20150625
  Receipt Date: 20150625
  Transmission Date: 20150821
  Serious: Yes (Death, Hospitalization, Other)
  Sender: FDA-Public Use
  Company Number: DK-INCYTE CORPORATION-2015IN002976

PATIENT
  Age: 64 Year
  Sex: Male

DRUGS (3)
  1. ERYTHROPOIETIN [Concomitant]
     Active Substance: ERYTHROPOIETIN
     Indication: MYELOFIBROSIS
     Route: 065
  2. INC424 [Suspect]
     Active Substance: RUXOLITINIB
     Indication: MYELOFIBROSIS
     Dosage: 25 MG, BID
     Route: 065
  3. INC424 [Suspect]
     Active Substance: RUXOLITINIB
     Dosage: 10 MG, BID
     Route: 065

REACTIONS (3)
  - Second primary malignancy [Unknown]
  - Gastrointestinal carcinoma [Unknown]
  - Ileus [Fatal]
